FAERS Safety Report 5599275-5 (Version None)
Quarter: 2008Q1

REPORT INFORMATION
  Report Type: 
  Country: None (occurrence: None)
  Receive Date: 20080117
  Receipt Date: 20080107
  Transmission Date: 20080703
  Serious: Yes (Hospitalization)
  Sender: FDA-Public Use
  Company Number: VISP-PR-0801S-0007

PATIENT
  Age: 63 Year
  Sex: Male

DRUGS (3)
  1. VISIPAQUE [Suspect]
     Indication: DYSPNOEA
     Dosage: 125 ML, SINGLE DOSE, I.V.
     Route: 042
     Dates: start: 20071223, end: 20071223
  2. VISIPAQUE [Suspect]
     Indication: PULMONARY EMBOLISM
     Dosage: 125 ML, SINGLE DOSE, I.V.
     Route: 042
     Dates: start: 20071223, end: 20071223
  3. GENERAL ANESTHESIA [Concomitant]

REACTIONS (5)
  - RENAL FAILURE [None]
  - RHABDOMYOLYSIS [None]
  - SMALL INTESTINAL OBSTRUCTION [None]
  - SPUTUM CULTURE POSITIVE [None]
  - STAPHYLOCOCCAL INFECTION [None]
